FAERS Safety Report 14801131 (Version 1)
Quarter: 2018Q2

REPORT INFORMATION
  Report Type: Spontaneous
  Country: US (occurrence: US)
  Receive Date: 20180424
  Receipt Date: 20180424
  Transmission Date: 20180711
  Serious: No
  Sender: FDA-Public Use
  Company Number: US-LYNE LABORATORIES INC.-2046387

PATIENT
  Sex: Female

DRUGS (1)
  1. FLUOCINOLONE ACETONIDE TOPICAL OIL, 0.01% (SCALP OIL) [Suspect]
     Active Substance: FLUOCINOLONE ACETONIDE
     Indication: SEBORRHOEIC DERMATITIS
     Route: 061

REACTIONS (1)
  - Drug ineffective [Unknown]
